FAERS Safety Report 7736417-7 (Version None)
Quarter: 2011Q3

REPORT INFORMATION
  Report Type: 
  Country: None (occurrence: None)
  Receive Date: 20110908
  Receipt Date: 20110829
  Transmission Date: 20111222
  Serious: Yes (Hospitalization, Other)
  Sender: FDA-Public Use
  Company Number: US-BAYER-201038795NA

PATIENT
  Age: 35 Year
  Sex: Female
  Weight: 100 kg

DRUGS (6)
  1. PHENERGAN HCL [Concomitant]
     Route: 048
  2. DARVOCET [Concomitant]
     Route: 048
  3. PAMELOR [Concomitant]
     Dosage: 75 MG, QD
     Dates: start: 20080601, end: 20100112
  4. AMOXICILLIN [Concomitant]
     Route: 048
  5. XANAX [Concomitant]
     Dosage: 1 MG, TID
     Dates: start: 20090501, end: 20100112
  6. DROSPIRENONE AND ETHINYL ESTRADIOL [Suspect]
     Dosage: UNK
     Route: 048
     Dates: start: 20090413, end: 20091130

REACTIONS (7)
  - GALLBLADDER INJURY [None]
  - INJURY [None]
  - MENTAL DISORDER [None]
  - SCAR [None]
  - CHOLECYSTITIS CHRONIC [None]
  - PAIN [None]
  - EMOTIONAL DISTRESS [None]
